FAERS Safety Report 19086318 (Version 1)
Quarter: 2021Q2

REPORT INFORMATION
  Report Type: Spontaneous
  Country: JP (occurrence: JP)
  Receive Date: 20210402
  Receipt Date: 20210402
  Transmission Date: 20210717
  Serious: Yes (Other)
  Sender: FDA-Public Use
  Company Number: JP-BAYER-2020-264040

PATIENT
  Age: 25 Year
  Sex: Female

DRUGS (1)
  1. MIRENA [Suspect]
     Active Substance: LEVONORGESTREL
     Dosage: 20 ?G PER DAY, CONT
     Route: 015
     Dates: start: 20180304, end: 20200824

REACTIONS (1)
  - Galactorrhoea [Unknown]

NARRATIVE: CASE EVENT DATE: 201809
